FAERS Safety Report 6496536-2 (Version None)
Quarter: 2009Q4

REPORT INFORMATION
  Report Type: 
  Country: None (occurrence: None)
  Receive Date: 20091214
  Receipt Date: 20091203
  Transmission Date: 20100525
  Serious: Yes (Other)
  Sender: FDA-Public Use
  Company Number: FR-GENENTECH-292697

PATIENT
  Age: 41 Year
  Sex: Male
  Weight: 70 kg

DRUGS (5)
  1. RITUXAN [Suspect]
     Indication: RHEUMATOID ARTHRITIS
     Dosage: 1000 MG, UNK
     Route: 042
     Dates: start: 20090501, end: 20090501
  2. PARACETAMOL [Concomitant]
     Indication: RHEUMATOID ARTHRITIS
     Dosage: 3 G, UNK
  3. KETOPROFEN [Concomitant]
     Indication: RHEUMATOID ARTHRITIS
     Dosage: 300 MG, UNK
  4. OMEPRAZOLE [Concomitant]
     Indication: DRUG USE FOR UNKNOWN INDICATION
     Dosage: 20 MG, UNK
  5. METOJECT [Concomitant]
     Indication: RHEUMATOID ARTHRITIS
     Dosage: 15 MBQ, UNK
     Route: 058

REACTIONS (1)
  - OPTIC NEURITIS [None]
